FAERS Safety Report 10074909 (Version 1)
Quarter: 2014Q2

REPORT INFORMATION
  Report Type: Spontaneous
  Country: DE (occurrence: DE)
  Receive Date: 20140414
  Receipt Date: 20140414
  Transmission Date: 20141212
  Serious: Yes (Other)
  Sender: FDA-Public Use
  Company Number: DE-BIOGENIDEC-2014BI032306

PATIENT
  Sex: Female

DRUGS (2)
  1. TECFIDERA [Suspect]
     Indication: MULTIPLE SCLEROSIS
     Dates: start: 20140315, end: 20140321
  2. TECFIDERA [Suspect]
     Indication: MULTIPLE SCLEROSIS
     Dates: start: 20140322, end: 20140329

REACTIONS (9)
  - Amnesia [Recovered/Resolved]
  - Somnolence [Recovered/Resolved]
  - Disturbance in attention [Recovered/Resolved]
  - Disorientation [Recovered/Resolved]
  - Daydreaming [Recovered/Resolved]
  - Cognitive disorder [Recovered/Resolved]
  - Constricted affect [Recovered/Resolved]
  - Emotional distress [Recovered/Resolved]
  - Panic reaction [Recovered/Resolved]
